FAERS Safety Report 13801634 (Version 1)
Quarter: 2017Q3

REPORT INFORMATION
  Report Type: Spontaneous
  Country: TW (occurrence: TW)
  Receive Date: 20170727
  Receipt Date: 20170727
  Transmission Date: 20171127
  Serious: Yes (Life-Threatening, Other)
  Sender: FDA-Public Use
  Company Number: PHHY2017TW109538

PATIENT
  Age: 50 Year
  Sex: Female

DRUGS (1)
  1. METFORMIN [Suspect]
     Active Substance: METFORMIN HYDROCHLORIDE
     Indication: DIABETES MELLITUS
     Dosage: MORE THAN 40 G, UNK
     Route: 048

REACTIONS (7)
  - Lactic acidosis [Unknown]
  - Renal injury [Unknown]
  - Hypernatraemia [Unknown]
  - Shock [Unknown]
  - Metabolic acidosis [Unknown]
  - Anuria [Unknown]
  - Suicide attempt [Unknown]
